FAERS Safety Report 10930946 (Version 1)
Quarter: 2015Q1

REPORT INFORMATION
  Report Type: Spontaneous
  Country: US (occurrence: US)
  Receive Date: 20150319
  Receipt Date: 20150319
  Transmission Date: 20150721
  Serious: No
  Sender: FDA-Public Use
  Company Number: US-BAUSCH-SYM-2014-21317

PATIENT
  Age: 34 Year
  Sex: Female
  Weight: 53.57 kg

DRUGS (2)
  1. TRETINOIN. [Suspect]
     Active Substance: TRETINOIN
     Indication: THERAPEUTIC SKIN CARE TOPICAL
     Route: 061
     Dates: start: 20140226, end: 20140228
  2. NU-DERM SYSTEM NORMAL-DRY SKIN TRANSFORMATION [Suspect]
     Active Substance: HYDROQUINONE\OCTINOXATE\ZINC OXIDE
     Indication: THERAPEUTIC SKIN CARE TOPICAL
     Dosage: APPLIED ONCE TO TWICE DAILY
     Route: 061
     Dates: start: 20140226, end: 20140228

REACTIONS (1)
  - Exposure during pregnancy [Unknown]

NARRATIVE: CASE EVENT DATE: 201402
